FAERS Safety Report 23456859 (Version 2)
Quarter: 2024Q1

REPORT INFORMATION
  Report Type: Other
  Country: MX (occurrence: None)
  Receive Date: 20240130
  Receipt Date: 20240206
  Transmission Date: 20240410
  Serious: Yes (Hospitalization)
  Sender: FDA-Public Use
  Company Number: MX-ROCHE-3500759

PATIENT
  Sex: Female

DRUGS (5)
  1. PULMOZYME [Suspect]
     Active Substance: DORNASE ALFA
     Indication: Cystic fibrosis
     Dosage: DOSE: ONE AMPOULE
     Route: 055
     Dates: start: 2005
  2. GLYCOPYRRONIUM\INDACATEROL [Concomitant]
     Active Substance: GLYCOPYRRONIUM\INDACATEROL
     Dosage: INDICATEROL MALEATE EQUIVALENT TO 110 MCG OF INDACATEROL. GLYCOPYRRONIUM BROMIDE EQUIVALENT TO 50 MC
     Route: 055
  3. PANCREATIN [Concomitant]
     Active Substance: PANCRELIPASE
     Dosage: 4 TABLETS EVERY 6 HOURS
     Route: 048
  4. TOBRAMYCIN [Concomitant]
     Active Substance: TOBRAMYCIN
     Dosage: ONE NEBULIZED VIAL EVERY 12 HOURS
     Route: 055
  5. TOBRAMYCIN [Concomitant]
     Active Substance: TOBRAMYCIN
     Dosage: DOSE WAS NOT REPORTED. APPLY FOR ONE MONTH AND THE SUSPEND IT NEXT MONTH
     Route: 055

REACTIONS (5)
  - Off label use [Unknown]
  - Bacterial infection [Unknown]
  - Bronchiectasis [Unknown]
  - Cough [Unknown]
  - Oxygen saturation decreased [Unknown]

NARRATIVE: CASE EVENT DATE: 20050101
